FAERS Safety Report 6292994-7 (Version None)
Quarter: 2009Q3

REPORT INFORMATION
  Report Type: 
  Country: None (occurrence: None)
  Receive Date: 20090731
  Receipt Date: 20090722
  Transmission Date: 20100115
  Serious: Yes (Other)
  Sender: FDA-Public Use
  Company Number: CA-MERCK-0805CAN00006

PATIENT
  Age: 35 Year
  Sex: Female

DRUGS (5)
  1. SINGULAIR [Suspect]
     Indication: ASTHMA
     Route: 048
     Dates: start: 20070607, end: 20080409
  2. SINGULAIR [Suspect]
     Route: 048
  3. SINGULAIR [Suspect]
     Indication: RHINITIS SEASONAL
     Route: 048
     Dates: start: 20070607, end: 20080409
  4. SINGULAIR [Suspect]
     Route: 048
  5. CETIRIZINE HYDROCHLORIDE [Concomitant]
     Route: 065

REACTIONS (1)
  - SUICIDAL IDEATION [None]
